APPROVED DRUG PRODUCT: BENZTROPINE MESYLATE
Active Ingredient: BENZTROPINE MESYLATE
Strength: 1MG
Dosage Form/Route: TABLET;ORAL
Application: A090294 | Product #002
Applicant: INVAGEN PHARMACEUTICALS INC
Approved: Mar 29, 2010 | RLD: No | RS: No | Type: DISCN